FAERS Safety Report 5537758-4 (Version None)
Quarter: 2007Q4

REPORT INFORMATION
  Report Type: 
  Country: None (occurrence: None)
  Receive Date: 20071207
  Receipt Date: 20071130
  Transmission Date: 20080405
  Serious: Yes (Other)
  Sender: FDA-Public Use
  Company Number: US-PFIZER INC-2007041296

PATIENT
  Sex: Male
  Weight: 90.7 kg

DRUGS (5)
  1. VIAGRA [Suspect]
     Indication: ERECTILE DYSFUNCTION
     Dates: start: 20020101, end: 20060101
  2. TOPROL-XL [Concomitant]
  3. VALSARTAN [Concomitant]
  4. LOVASTATIN [Concomitant]
  5. ASACOL [Concomitant]
     Dates: start: 19950401

REACTIONS (2)
  - BLINDNESS [None]
  - OPTIC ISCHAEMIC NEUROPATHY [None]
